FAERS Safety Report 8858207 (Version 1)
Quarter: 2012Q4

REPORT INFORMATION
  Report Type: 
  Country: US (occurrence: US)
  Receive Date: 20121024
  Receipt Date: 20121024
  Transmission Date: 20130627
  Serious: No
  Sender: FDA-Public Use
  Company Number: US-AMGEN-USASP2011067146

PATIENT
  Age: 65 Year
  Sex: Female
  Weight: 92.06 kg

DRUGS (6)
  1. ENBREL [Suspect]
     Indication: PRODUCT USED FOR UNKNOWN INDICATION
     Dosage: 25 mg, 2 times/wk
     Route: 058
  2. METHOTREXATE [Concomitant]
     Dosage: 2.5 mg, UNK
  3. CELEBREX [Concomitant]
     Dosage: 100 mg, UNK
  4. FERGON [Concomitant]
     Dosage: 240 mg, UNK
  5. OMEPRAZOLE [Concomitant]
     Dosage: 20 mg, UNK
  6. TYLENOL [Concomitant]
     Dosage: 500 mg, UNK

REACTIONS (3)
  - Intervertebral disc disorder [Unknown]
  - Pneumonia [Unknown]
  - Injection site bruising [Unknown]
